FAERS Safety Report 4691087-X (Version None)
Quarter: 2005Q2

REPORT INFORMATION
  Report Type: 
  Country: None (occurrence: None)
  Receive Date: 20050610
  Receipt Date: 20050527
  Transmission Date: 20051028
  Serious: Yes (Hospitalization)
  Sender: FDA-Public Use
  Company Number: CERZ-10903

PATIENT
  Age: 11 Month
  Sex: Female
  Weight: 5.5 kg

DRUGS (1)
  1. CEREZYME [Suspect]
     Indication: GAUCHER'S DISEASE
     Dosage: 400 UNITS Q2WKS IV
     Route: 042
     Dates: start: 20040827

REACTIONS (3)
  - DISEASE RECURRENCE [None]
  - RESPIRATORY DISORDER [None]
  - VOMITING [None]
